FAERS Safety Report 12087979 (Version 1)
Quarter: 2016Q1

REPORT INFORMATION
  Report Type: Spontaneous
  Country: US (occurrence: US)
  Receive Date: 20160217
  Receipt Date: 20160217
  Transmission Date: 20160526
  Serious: No
  Sender: FDA-Public Use
  Company Number: US-ALLERGAN-1526178US

PATIENT
  Age: 39 Year
  Sex: Female

DRUGS (1)
  1. KYBELLA [Suspect]
     Active Substance: DEOXYCHOLIC ACID
     Indication: LIPODYSTROPHY ACQUIRED
     Dosage: UNK, SINGLE
     Route: 030
     Dates: start: 20151209, end: 20151209

REACTIONS (3)
  - Influenza like illness [Recovered/Resolved]
  - Off label use [Unknown]
  - Incorrect route of drug administration [Unknown]

NARRATIVE: CASE EVENT DATE: 20151209
